FAERS Safety Report 10168238 (Version 2)
Quarter: 2014Q2

REPORT INFORMATION
  Report Type: Spontaneous
  Country: IE (occurrence: IE)
  Receive Date: 20140512
  Receipt Date: 20140610
  Transmission Date: 20141212
  Serious: Yes (Life-Threatening, Hospitalization, Other)
  Sender: FDA-Public Use
  Company Number: IE-ABBVIE-14P-167-1235562-00

PATIENT
  Age: 55 Year
  Sex: Female
  Weight: 40 kg

DRUGS (6)
  1. CREON [Suspect]
     Indication: PANCREATITIS
     Dosage: 25000
     Route: 048
  2. LYRICA [Concomitant]
     Indication: PAIN
     Route: 048
  3. ROSUVASTATIN [Concomitant]
     Indication: BLOOD CHOLESTEROL INCREASED
     Route: 048
  4. CLOPIDOGREL [Concomitant]
     Indication: MYOCARDIAL INFARCTION
     Route: 048
  5. THIAMINE [Concomitant]
     Indication: VITAMIN B COMPLEX DEFICIENCY
     Route: 048
  6. BISOPROLOL [Concomitant]
     Indication: HYPERTENSION
     Route: 048

REACTIONS (4)
  - Respiratory arrest [Recovered/Resolved]
  - Drug dose omission [Unknown]
  - Malaise [Unknown]
  - Gastrointestinal tube insertion [Unknown]
